FAERS Safety Report 19940258 (Version 1)
Quarter: 2021Q4

REPORT INFORMATION
  Report Type: Spontaneous
  Country: CN (occurrence: CN)
  Receive Date: 20211012
  Receipt Date: 20211012
  Transmission Date: 20220303
  Serious: No
  Sender: FDA-Public Use
  Company Number: CN-ALKEM LABORATORIES LIMITED-CN-ALKEM-2021-05886

PATIENT

DRUGS (2)
  1. ATORVASTATIN CALCIUM [Suspect]
     Active Substance: ATORVASTATIN CALCIUM
     Indication: Hyperlipidaemia
     Dosage: UNK
     Route: 065
  2. BEZAFIBRATE [Suspect]
     Active Substance: BEZAFIBRATE
     Indication: Hyperlipidaemia
     Dosage: UNK
     Route: 065

REACTIONS (1)
  - Drug resistance [Unknown]
